FAERS Safety Report 16608951 (Version 3)
Quarter: 2021Q2

REPORT INFORMATION
  Report Type: Spontaneous
  Country: US (occurrence: US)
  Receive Date: 20190722
  Receipt Date: 20210419
  Transmission Date: 20210716
  Serious: Yes (Hospitalization)
  Sender: FDA-Public Use
  Company Number: US-CORCEPT THERAPEUTICS INC.-US-2019CRT000634

PATIENT
  Age: 35 Year
  Sex: Female

DRUGS (9)
  1. MIFEPRISTONE [Suspect]
     Active Substance: MIFEPRISTONE
     Dosage: 1200 MG, QOD (ALTERNATING WITH 900 MG PER DAY)
     Route: 065
     Dates: start: 201806, end: 2018
  2. LOESTRIN NOS [Suspect]
     Active Substance: ETHINYL ESTRADIOL\NORETHINDRONE ACETATE
     Indication: PRODUCT USED FOR UNKNOWN INDICATION
     Dosage: UNK
     Dates: end: 2018
  3. MIFEPRISTONE [Suspect]
     Active Substance: MIFEPRISTONE
     Dosage: 600 MG, QD
     Route: 065
     Dates: start: 201803, end: 201805
  4. DDAVP [Concomitant]
     Active Substance: DESMOPRESSIN ACETATE
     Indication: PRODUCT USED FOR UNKNOWN INDICATION
     Dosage: UNK
  5. LEVOTHYROXINE. [Concomitant]
     Active Substance: LEVOTHYROXINE
     Indication: PRODUCT USED FOR UNKNOWN INDICATION
     Dosage: UNK
  6. ETHINYLESTRADIOL [Concomitant]
     Active Substance: ETHINYL ESTRADIOL
     Indication: PRODUCT USED FOR UNKNOWN INDICATION
     Dosage: UNK
  7. MIFEPRISTONE [Suspect]
     Active Substance: MIFEPRISTONE
     Indication: CUSHING^S SYNDROME
     Dosage: 300 MG, QD
     Route: 065
     Dates: start: 201802, end: 201803
  8. MIFEPRISTONE [Suspect]
     Active Substance: MIFEPRISTONE
     Dosage: 900 MG, QD
     Route: 065
     Dates: start: 201805, end: 201806
  9. MIFEPRISTONE [Suspect]
     Active Substance: MIFEPRISTONE
     Dosage: 900 MG, QOD (ALTERNATIGN WITH 1200 MG PER DAY)
     Route: 065
     Dates: start: 201806, end: 2018

REACTIONS (3)
  - Incorrect dose administered [Unknown]
  - Drug interaction [Unknown]
  - Drug-induced liver injury [Recovered/Resolved]

NARRATIVE: CASE EVENT DATE: 2018
